FAERS Safety Report 20022087 (Version 4)
Quarter: 2021Q4

REPORT INFORMATION
  Report Type: Report from Study
  Country: TW (occurrence: TW)
  Receive Date: 20211102
  Receipt Date: 20211231
  Transmission Date: 20220303
  Serious: Yes (Other)
  Sender: FDA-Public Use
  Company Number: TW-BAYER-2021A237236

PATIENT

DRUGS (1)
  1. EYLEA [Suspect]
     Active Substance: AFLIBERCEPT
     Indication: Neovascular age-related macular degeneration
     Dosage: 0.05 ML, ONCE, LEFT EYE, RECEIVED A TOTAL OF MORE THAN 10 INJECTIONS
     Route: 031
     Dates: start: 2017

REACTIONS (3)
  - Eye haemorrhage [Not Recovered/Not Resolved]
  - Drug ineffective [Unknown]
  - Injection site pruritus [Recovered/Resolved]

NARRATIVE: CASE EVENT DATE: 20211001
